FAERS Safety Report 9563072 (Version 1)
Quarter: 2013Q3

REPORT INFORMATION
  Report Type: Spontaneous
  Country: US (occurrence: US)
  Receive Date: 20130927
  Receipt Date: 20130927
  Transmission Date: 20140515
  Serious: No
  Sender: FDA-Public Use
  Company Number: US-BRISTOL-MYERS SQUIBB COMPANY-16967481

PATIENT
  Age: 70 Year
  Sex: Female

DRUGS (3)
  1. ONGLYZA TABS [Suspect]
     Indication: DIABETES MELLITUS
     Route: 048
  2. PRANDIN [Concomitant]
  3. EVISTA [Concomitant]

REACTIONS (1)
  - Blood sodium decreased [Unknown]
